FAERS Safety Report 10224299 (Version 1)
Quarter: 2014Q2

REPORT INFORMATION
  Report Type: Report from Study
  Country: TN (occurrence: TN)
  Receive Date: 20140609
  Receipt Date: 20140609
  Transmission Date: 20141212
  Serious: Yes (Death)
  Sender: FDA-Public Use
  Company Number: TN-SA-2014SA073543

PATIENT
  Age: 84 Year
  Sex: Male

DRUGS (6)
  1. PLAVIX [Suspect]
     Indication: MYOCARDIAL INFARCTION
     Dosage: DOSE;75 UNITS NOT SPECIFIED
     Route: 048
     Dates: start: 20130918, end: 20140302
  2. ASPEGIC [Concomitant]
     Route: 048
  3. LOPRIL /FRA/ [Concomitant]
     Route: 048
  4. VASCOR [Concomitant]
     Route: 048
  5. FAMODINE [Concomitant]
     Route: 048
  6. FUMAFER [Concomitant]
     Route: 048

REACTIONS (1)
  - Sudden death [Fatal]
